FAERS Safety Report 20954119 (Version 1)
Quarter: 2022Q2

REPORT INFORMATION
  Report Type: Spontaneous
  Country: US (occurrence: US)
  Receive Date: 20220614
  Receipt Date: 20220614
  Transmission Date: 20220721
  Serious: No
  Sender: FDA-Public Use
  Company Number: US-JNJFOC-20220551297

PATIENT
  Age: 33 Year
  Sex: Female

DRUGS (2)
  1. TREMFYA [Suspect]
     Active Substance: GUSELKUMAB
     Indication: Psoriasis
     Route: 058
     Dates: start: 202205
  2. MIRENA [Concomitant]
     Active Substance: LEVONORGESTREL
     Indication: Contraception

REACTIONS (1)
  - Intermenstrual bleeding [Unknown]
